FAERS Safety Report 7807770-0 (Version None)
Quarter: 2011Q4

REPORT INFORMATION
  Report Type: 
  Country: None (occurrence: None)
  Receive Date: 20111011
  Receipt Date: 20111003
  Transmission Date: 20120403
  Serious: Yes (Hospitalization, Other)
  Sender: FDA-Public Use
  Company Number: US-ASTRAZENECA-2011SE42667

PATIENT
  Age: 68 Year
  Sex: Female

DRUGS (10)
  1. KLONOPIN [Concomitant]
  2. THYROID HORMONES [Concomitant]
  3. FISH OIL [Concomitant]
  4. SEROQUEL [Suspect]
     Indication: SLEEP DISORDER
     Route: 048
  5. IODINE [Concomitant]
  6. SEROQUEL [Suspect]
     Indication: ANXIETY
     Route: 048
  7. VALIUM [Concomitant]
  8. AMINO ACIDS [Concomitant]
  9. SEROQUEL [Suspect]
     Route: 048
  10. SEROQUEL [Suspect]
     Route: 048

REACTIONS (11)
  - INSOMNIA [None]
  - VOMITING [None]
  - HYPOKINESIA [None]
  - OFF LABEL USE [None]
  - DRUG DOSE OMISSION [None]
  - COORDINATION ABNORMAL [None]
  - AMNESIA [None]
  - HEADACHE [None]
  - CIRCUMSTANCE OR INFORMATION CAPABLE OF LEADING TO MEDICATION ERROR [None]
  - MALAISE [None]
  - TREMOR [None]
